FAERS Safety Report 16532084 (Version 1)
Quarter: 2019Q3

REPORT INFORMATION
  Report Type: Report from Study
  Country: None (occurrence: BR)
  Receive Date: 20190704
  Receipt Date: 20190704
  Transmission Date: 20191004
  Serious: Yes (Disabling, Other)
  Sender: FDA-Public Use
  Company Number: BR-ABBVIE-19K-020-2837683-00

PATIENT
  Sex: Female
  Weight: 65 kg

DRUGS (3)
  1. ARAVA [Concomitant]
     Active Substance: LEFLUNOMIDE
  2. ARAVA [Concomitant]
     Active Substance: LEFLUNOMIDE
     Indication: RHEUMATOID ARTHRITIS
  3. HUMIRA [Suspect]
     Active Substance: ADALIMUMAB
     Indication: RHEUMATOID ARTHRITIS
     Route: 058
     Dates: start: 20190314, end: 2019

REACTIONS (13)
  - Decreased appetite [Not Recovered/Not Resolved]
  - Asthenia [Unknown]
  - Gait inability [Recovering/Resolving]
  - Weight decreased [Not Recovered/Not Resolved]
  - Drug intolerance [Unknown]
  - Amnesia [Not Recovered/Not Resolved]
  - Rheumatoid arthritis [Unknown]
  - Gait disturbance [Recovering/Resolving]
  - Dysstasia [Unknown]
  - Eating disorder [Unknown]
  - Therapeutic product effect incomplete [Unknown]
  - Bedridden [Recovering/Resolving]
  - Malaise [Recovering/Resolving]
